FAERS Safety Report 13191752 (Version 4)
Quarter: 2017Q2

REPORT INFORMATION
  Report Type: Spontaneous
  Country: US (occurrence: US)
  Receive Date: 20170207
  Receipt Date: 20170505
  Transmission Date: 20170830
  Serious: Yes (Other)
  Sender: FDA-Public Use
  Company Number: US-009507513-1701USA006626

PATIENT
  Age: 55 Year
  Sex: Female
  Weight: 55.78 kg

DRUGS (2)
  1. ADVAIR HFA [Concomitant]
     Active Substance: FLUTICASONE PROPIONATE\SALMETEROL XINAFOATE
     Indication: CHRONIC OBSTRUCTIVE PULMONARY DISEASE
     Dosage: UNK
     Dates: end: 20161230
  2. DULERA [Suspect]
     Active Substance: FORMOTEROL FUMARATE DIHYDRATE\MOMETASONE FUROATE
     Indication: CHRONIC OBSTRUCTIVE PULMONARY DISEASE
     Dosage: 200 MCG/5 MCG INHALER; 2 PUFFS BY MOUTH AM/PM
     Route: 055
     Dates: start: 20161230, end: 20170110

REACTIONS (12)
  - Feeling abnormal [Unknown]
  - Vision blurred [Recovering/Resolving]
  - Somnolence [Unknown]
  - Vertigo [Recovering/Resolving]
  - Dizziness [Unknown]
  - Bronchitis [Unknown]
  - Vomiting [Unknown]
  - Pneumonia [Unknown]
  - Dyspnoea [Unknown]
  - Dysarthria [Unknown]
  - Loss of consciousness [Recovered/Resolved]
  - Dry mouth [Unknown]

NARRATIVE: CASE EVENT DATE: 2017
